FAERS Safety Report 10451204 (Version 2)
Quarter: 2014Q3

REPORT INFORMATION
  Report Type: Spontaneous
  Country: US (occurrence: US)
  Receive Date: 20140912
  Receipt Date: 20140912
  Transmission Date: 20150326
  Serious: No
  Sender: FDA-Public Use
  Company Number: US-GALDERMA-US14002246

PATIENT
  Age: 47 Year
  Sex: Female

DRUGS (8)
  1. MIRVASO [Suspect]
     Active Substance: BRIMONIDINE TARTRATE
     Indication: ROSACEA
     Dosage: 0.33%
     Route: 061
     Dates: start: 20140526, end: 20140616
  2. NEUTROGENA DAILY MOISTURIZER WITH SUNSCREEN [Concomitant]
     Indication: DRY SKIN PROPHYLAXIS
     Route: 061
     Dates: end: 20140614
  3. NEUTROGENA SUNSCREEN SPF 30 [Concomitant]
     Route: 061
  4. UNKNOWN VITAMIN C GEL MOISTURIZER [Concomitant]
     Indication: DRY SKIN PROPHYLAXIS
     Route: 061
  5. ATTACHE FACIAL CLEANSER [Concomitant]
     Indication: THERAPEUTIC SKIN CARE TOPICAL
     Route: 061
  6. AVAR CLEANSER [Concomitant]
     Route: 061
     Dates: start: 20140518, end: 20140616
  7. AVAR CREAM [Concomitant]
     Route: 061
     Dates: start: 20140518, end: 20140616
  8. NEUTROGENA DAILY MOISTURIZER WITH SUNSCREEN [Concomitant]
     Indication: PROPHYLAXIS AGAINST SOLAR RADIATION

REACTIONS (4)
  - Swelling face [Recovered/Resolved]
  - Condition aggravated [Recovering/Resolving]
  - Rash maculo-papular [Recovered/Resolved]
  - Erythema [Recovering/Resolving]

NARRATIVE: CASE EVENT DATE: 20140602
